FAERS Safety Report 9308710 (Version 1)
Quarter: 2013Q2

REPORT INFORMATION
  Report Type: Spontaneous
  Country: JP (occurrence: JP)
  Receive Date: 20130524
  Receipt Date: 20130524
  Transmission Date: 20140414
  Serious: Yes (Hospitalization)
  Sender: FDA-Public Use
  Company Number: PHHY2013JP051982

PATIENT
  Sex: Male

DRUGS (5)
  1. CUBICIN [Suspect]
     Indication: STAPHYLOCOCCAL INFECTION
     Dosage: 12 MG/KG, QD
     Route: 041
  2. CUBICIN [Suspect]
     Indication: DEVICE RELATED INFECTION
  3. CUBICIN [Suspect]
     Indication: OFF LABEL USE
  4. RIFAMPICIN [Suspect]
  5. BAKTAR [Suspect]
     Route: 048

REACTIONS (2)
  - Tremor [Not Recovered/Not Resolved]
  - Overdose [Unknown]
